APPROVED DRUG PRODUCT: EXXUA
Active Ingredient: GEPIRONE HYDROCHLORIDE
Strength: EQ 72.6MG BASE
Dosage Form/Route: TABLET, EXTENDED RELEASE;ORAL
Application: N021164 | Product #004
Applicant: FABRE KRAMER PHARMACEUTICALS INC
Approved: Sep 22, 2023 | RLD: Yes | RS: Yes | Type: RX

PATENTS:
Patent 7538116 | Expires: Sep 2, 2030

EXCLUSIVITY:
Code: NCE | Date: Sep 22, 2028